FAERS Safety Report 5368168-0 (Version None)
Quarter: 2007Q2

REPORT INFORMATION
  Report Type: 
  Country: None (occurrence: None)
  Receive Date: 20070625
  Receipt Date: 20070614
  Transmission Date: 20071010
  Serious: Yes (Other)
  Sender: FDA-Public Use
  Company Number: PHHO2007NZ10278

PATIENT
  Sex: Female

DRUGS (9)
  1. CLOZARIL [Suspect]
     Indication: SCHIZOPHRENIA
     Dosage: VARIABLE
     Route: 048
     Dates: start: 20070504, end: 20070604
  2. DOCUSATE [Concomitant]
  3. SENNA [Concomitant]
  4. ZOPICLONE [Concomitant]
  5. SELEGILINE HCL [Concomitant]
  6. THIAMINE [Concomitant]
  7. SINEMET [Concomitant]
  8. LISURIDE [Concomitant]
  9. OMEPRAZOLE [Concomitant]

REACTIONS (3)
  - MOBILITY DECREASED [None]
  - PARKINSON'S DISEASE [None]
  - SEDATION [None]
